FAERS Safety Report 7246515-2 (Version None)
Quarter: 2011Q1

REPORT INFORMATION
  Report Type: 
  Country: None (occurrence: None)
  Receive Date: 20110126
  Receipt Date: 20110124
  Transmission Date: 20110831
  Serious: Yes (Other)
  Sender: FDA-Public Use
  Company Number: US-AMGEN-USASP2011003362

PATIENT
  Age: 64 Year
  Sex: Male
  Weight: 82.086 kg

DRUGS (2)
  1. IMMUNOGLOBULINS [Concomitant]
  2. NPLATE [Suspect]
     Indication: IDIOPATHIC THROMBOCYTOPENIC PURPURA
     Dates: start: 20100519

REACTIONS (2)
  - PLATELET COUNT DECREASED [None]
  - NASOPHARYNGITIS [None]
